FAERS Safety Report 5142993-3 (Version None)
Quarter: 2006Q4

REPORT INFORMATION
  Report Type: 
  Country: None (occurrence: None)
  Receive Date: 20061103
  Receipt Date: 20060802
  Transmission Date: 20070319
  Serious: Yes (Hospitalization)
  Sender: FDA-Public Use
  Company Number: 2006AP03603

PATIENT
  Age: 25592 Day
  Sex: Female
  Weight: 38 kg

DRUGS (10)
  1. OMEPRAL [Suspect]
     Indication: GASTRIC ULCER
     Route: 048
     Dates: start: 20060616, end: 20060731
  2. ZESTRIL [Concomitant]
     Indication: HYPERTENSION
     Route: 048
     Dates: end: 20060616
  3. NORVASC [Concomitant]
     Indication: HYPERTENSION
     Route: 048
     Dates: end: 20060616
  4. DOGMATYL [Concomitant]
     Route: 048
     Dates: end: 20060616
  5. TAGAMET [Concomitant]
     Route: 048
     Dates: end: 20060616
  6. DEPAS [Concomitant]
     Route: 048
  7. EXCELASE(DIGESTIVE ENZYME PREPARATION CONTAINING SANCTASE) [Concomitant]
     Route: 048
     Dates: end: 20060616
  8. BLADDERON [Concomitant]
     Route: 048
     Dates: end: 20060616
  9. CERCINE [Concomitant]
     Route: 042
     Dates: start: 20060616, end: 20060616
  10. LEVOFLOXACIN [Concomitant]
     Route: 048
     Dates: start: 20060614, end: 20060616

REACTIONS (4)
  - CARDIAC FAILURE [None]
  - PLEURAL EFFUSION [None]
  - RASH [None]
  - RESPIRATORY DEPRESSION [None]
